FAERS Safety Report 8379314-9 (Version None)
Quarter: 2012Q2

REPORT INFORMATION
  Report Type: 
  Country: None (occurrence: None)
  Receive Date: 20120523
  Receipt Date: 20120517
  Transmission Date: 20120825
  Serious: Yes (Other)
  Sender: FDA-Public Use
  Company Number: PHHY2011BR82861

PATIENT
  Sex: Female
  Weight: 88 kg

DRUGS (6)
  1. SANDOSTATIN LAR [Suspect]
     Dosage: 30 MG, UNK
     Route: 030
     Dates: start: 20111101
  2. INDAPAMIDE [Concomitant]
  3. DIURETICS [Concomitant]
  4. LOSARTAN POTASSIUM [Concomitant]
  5. SANDOSTATIN LAR [Suspect]
     Indication: ACROMEGALY
     Dosage: 20 MG, UNK
     Route: 030
     Dates: start: 20110701, end: 20111001
  6. GILFAGE [Concomitant]
     Indication: DIABETES MELLITUS

REACTIONS (25)
  - ELECTROCARDIOGRAM REPOLARISATION ABNORMALITY [None]
  - TRIGGER FINGER [None]
  - GAIT DISTURBANCE [None]
  - WEIGHT INCREASED [None]
  - NEOPLASM [None]
  - BLOOD PRESSURE INCREASED [None]
  - NERVOUSNESS [None]
  - ABDOMINAL PAIN [None]
  - MITRAL VALVE INCOMPETENCE [None]
  - DEPRESSION [None]
  - DRUG INEFFECTIVE [None]
  - CHEST PAIN [None]
  - THERAPEUTIC RESPONSE DELAYED [None]
  - SCIATIC NERVE NEUROPATHY [None]
  - FATIGUE [None]
  - INJECTION SITE PAIN [None]
  - SOMNOLENCE [None]
  - NAUSEA [None]
  - WEIGHT DECREASED [None]
  - BACK PAIN [None]
  - SPINAL PAIN [None]
  - COLITIS [None]
  - EMOTIONAL DISORDER [None]
  - ABDOMINAL DISTENSION [None]
  - HEADACHE [None]
